FAERS Safety Report 8336138-6 (Version None)
Quarter: 2012Q1

REPORT INFORMATION
  Report Type: 
  Country: None (occurrence: None)
  Receive Date: 20120329
  Receipt Date: 20100113
  Transmission Date: 20120608
  Serious: Yes (Other)
  Sender: FDA-Public Use
  Company Number: PHHY2010US01903

PATIENT
  Age: 92 Year
  Sex: Male

DRUGS (7)
  1. CALCIUM CHANNEL BLOCKERS (NO INGREDIENTS/SUBSTANCES) [Concomitant]
  2. CARDURA [Concomitant]
  3. BETA BLOCKING AGENTS (NO INGREDIENTS/SUBSTANCES) [Concomitant]
  4. EXELON [Suspect]
     Dosage: TRANSDERMAL
     Route: 062
  5. LISINOPRIL [Concomitant]
  6. HYDROCHLOROTHIAZIDE [Concomitant]
  7. NEXIUM [Concomitant]

REACTIONS (1)
  - HALLUCINATION, AUDITORY [None]
